FAERS Safety Report 6943697-4 (Version None)
Quarter: 2010Q3

REPORT INFORMATION
  Report Type: 
  Country: None (occurrence: None)
  Receive Date: 20100826
  Receipt Date: 20100817
  Transmission Date: 20110219
  Serious: Yes (Other)
  Sender: FDA-Public Use
  Company Number: A0724354A

PATIENT
  Age: 50 Year
  Sex: Male

DRUGS (9)
  1. LAMICTAL [Suspect]
     Indication: BIPOLAR DISORDER
     Dosage: 200MG AT NIGHT
     Route: 048
     Dates: start: 20080201, end: 20080608
  2. BACTRIM [Suspect]
     Dates: start: 20080601, end: 20080601
  3. DEPAKOTE [Suspect]
  4. PAXIL [Suspect]
     Indication: PRODUCT USED FOR UNKNOWN INDICATION
     Route: 065
  5. TRAZODONE HCL [Concomitant]
  6. FAMOTIDINE [Concomitant]
  7. ASPIRIN [Concomitant]
  8. ATIVAN [Concomitant]
  9. SEROQUEL [Concomitant]

REACTIONS (24)
  - ABNORMAL DREAMS [None]
  - ACNE [None]
  - ADVERSE EVENT [None]
  - ANXIETY [None]
  - ARTHRALGIA [None]
  - DIARRHOEA [None]
  - DIZZINESS [None]
  - ENERGY INCREASED [None]
  - FATIGUE [None]
  - HEADACHE [None]
  - INCREASED APPETITE [None]
  - INSOMNIA [None]
  - IRRITABILITY [None]
  - MUSCULOSKELETAL STIFFNESS [None]
  - MYALGIA [None]
  - NAUSEA [None]
  - NEPHROLITHIASIS [None]
  - NIGHT SWEATS [None]
  - NIGHTMARE [None]
  - NOCTURIA [None]
  - RENAL DISORDER [None]
  - RESTLESSNESS [None]
  - SOMNOLENCE [None]
  - WEIGHT DECREASED [None]
